FAERS Safety Report 6353954-0 (Version None)
Quarter: 2009Q3

REPORT INFORMATION
  Report Type: 
  Country: None (occurrence: None)
  Receive Date: 20090912
  Receipt Date: 20090622
  Transmission Date: 20100115
  Serious: Yes (Hospitalization, Other)
  Sender: FDA-Public Use
  Company Number: US-ABBOTT-08P-163-0481332-00

PATIENT
  Sex: Male
  Weight: 88.53 kg

DRUGS (7)
  1. HUMIRA [Suspect]
     Indication: PSORIASIS
     Route: 058
     Dates: start: 20080811
  2. LOTREL [Concomitant]
     Indication: HYPERTENSION
     Dosage: 10/40MG ONCE A DAY
     Route: 048
  3. POTASSIUM CHLORIDE [Concomitant]
     Indication: HYPERTENSION
     Route: 048
  4. HYDROCHLOROTHIAZIDE [Concomitant]
     Indication: HYPERTENSION
     Route: 048
  5. METOPROLOL TARTRATE [Concomitant]
     Indication: HYPERTENSION
     Route: 048
  6. ESOMEPRAZOLE MAGNESIUM [Concomitant]
     Indication: GASTROOESOPHAGEAL REFLUX DISEASE
     Route: 048
  7. ROSUVASTATIN CALCIUM [Concomitant]
     Indication: BLOOD CHOLESTEROL INCREASED
     Route: 048

REACTIONS (4)
  - ACCIDENTAL NEEDLE STICK [None]
  - CHEST PAIN [None]
  - CORONARY ARTERY OCCLUSION [None]
  - INCORRECT DOSE ADMINISTERED [None]
